FAERS Safety Report 16777554 (Version 1)
Quarter: 2019Q3

REPORT INFORMATION
  Report Type: Spontaneous
  Country: CA (occurrence: CA)
  Receive Date: 20190905
  Receipt Date: 20190905
  Transmission Date: 20191005
  Serious: Yes (Other)
  Sender: FDA-Public Use
  Company Number: CA-TEVA-2019-CA-1101667

PATIENT
  Age: 65 Year
  Sex: Female

DRUGS (4)
  1. LEUCOVORIN CALCIUM INJECTION USP [Suspect]
     Active Substance: LEUCOVORIN CALCIUM
     Indication: PANCREATIC CARCINOMA
     Route: 042
  2. FLUOROURACIL INJECTION USP [Suspect]
     Active Substance: FLUOROURACIL
     Route: 065
  3. ELOXATIN [Suspect]
     Active Substance: OXALIPLATIN
     Route: 065
  4. IRINOTECAN HYDROCHLORIDE. [Suspect]
     Active Substance: IRINOTECAN HYDROCHLORIDE
     Route: 065

REACTIONS (1)
  - Neuropathy peripheral [Unknown]
